FAERS Safety Report 7729651-3 (Version None)
Quarter: 2011Q3

REPORT INFORMATION
  Report Type: 
  Country: None (occurrence: None)
  Receive Date: 20110906
  Receipt Date: 20110826
  Transmission Date: 20111222
  Serious: Yes (Other)
  Sender: FDA-Public Use
  Company Number: US-BAXTER-2011BH026757

PATIENT
  Age: 67 Year
  Sex: Female

DRUGS (9)
  1. INDAPAMIDE [Concomitant]
     Indication: HYPERTENSION
     Route: 048
  2. IBANDRONATE SODIUM [Concomitant]
     Indication: OSTEOPOROSIS
     Route: 048
  3. FOSINOPRIL SODIUM [Concomitant]
     Indication: HYPERTENSION
     Route: 048
  4. GAMMAGARD LIQUID [Suspect]
     Route: 042
     Dates: start: 20091001, end: 20091001
  5. VITAMIN D [Concomitant]
     Indication: OSTEOPOROSIS
     Route: 048
  6. ZETIA [Concomitant]
     Indication: BLOOD CHOLESTEROL INCREASED
     Route: 048
  7. CALCIUM CARBONATE [Concomitant]
     Indication: OSTEOPOROSIS
     Route: 048
  8. GAMMAGARD LIQUID [Suspect]
     Indication: MULTIFOCAL MOTOR NEUROPATHY
     Route: 042
     Dates: start: 20070101, end: 20091022
  9. PAXIL [Concomitant]
     Indication: DEPRESSION
     Route: 048

REACTIONS (2)
  - TRANSIENT ISCHAEMIC ATTACK [None]
  - OPTIC ISCHAEMIC NEUROPATHY [None]
